FAERS Safety Report 5862961-3 (Version None)
Quarter: 2008Q3

REPORT INFORMATION
  Report Type: 
  Country: None (occurrence: None)
  Receive Date: 20080828
  Receipt Date: 20080818
  Transmission Date: 20090109
  Serious: Yes (Life-Threatening, Hospitalization)
  Sender: FDA-Public Use
  Company Number: B0506864A

PATIENT
  Age: 21 Year
  Sex: Female

DRUGS (5)
  1. LAMICTAL [Suspect]
     Indication: EPILEPSY
     Route: 048
     Dates: start: 20080108, end: 20080128
  2. NOROXIN [Suspect]
     Indication: CYSTITIS
     Route: 065
     Dates: start: 20080120, end: 20080123
  3. DEPAKENE [Concomitant]
     Indication: EPILEPSY
     Dosage: 1000MG TWICE PER DAY
     Route: 048
     Dates: start: 19950101, end: 20080130
  4. ATARAX [Concomitant]
     Indication: DRUG USE FOR UNKNOWN INDICATION
     Route: 048
  5. ORAL CONTRACEPTION [Concomitant]
     Indication: CONTRACEPTION
     Route: 048
     Dates: start: 20070101

REACTIONS (19)
  - ANAEMIA [None]
  - CYSTITIS [None]
  - DERMATITIS BULLOUS [None]
  - DYSPAREUNIA [None]
  - FACE OEDEMA [None]
  - HYPERAESTHESIA [None]
  - LACRIMATION INCREASED [None]
  - LEUKOCYTOSIS [None]
  - MUCOUS MEMBRANE DISORDER [None]
  - OEDEMA PERIPHERAL [None]
  - PRURITUS [None]
  - PYREXIA [None]
  - RASH MACULO-PAPULAR [None]
  - SKIN DISCOLOURATION [None]
  - SKIN DISORDER [None]
  - TACHYCARDIA [None]
  - TONGUE EXFOLIATION [None]
  - TOXIC EPIDERMAL NECROLYSIS [None]
  - VULVOVAGINAL DRYNESS [None]
